FAERS Safety Report 5261382-4 (Version None)
Quarter: 2007Q1

REPORT INFORMATION
  Report Type: 
  Country: None (occurrence: None)
  Receive Date: 20070307
  Receipt Date: 20070301
  Transmission Date: 20070707
  Serious: Yes (Death, Hospitalization, Other)
  Sender: FDA-Public Use
  Company Number: 163-21880-07011480

PATIENT
  Age: 82 Year
  Sex: Female

DRUGS (14)
  1. REVLIMID [Suspect]
     Indication: MYELODYSPLASTIC SYNDROME
     Dosage: 5 MG, 1 IN 1 D, ORAL
     Route: 048
     Dates: start: 20060417, end: 20070115
  2. REVLIMID [Suspect]
  3. FOLIC ACID [Concomitant]
  4. TRAMADOL HCL [Concomitant]
  5. LIPITOR [Concomitant]
  6. PROTONIX [Concomitant]
  7. SPIRIVIA (TIOTROPIUM BROMIDE) [Concomitant]
  8. ALBUTEROL [Concomitant]
  9. VITAMIN B6 [Concomitant]
  10. LORAZEPAM [Concomitant]
  11. TRAZODONE HCL [Concomitant]
  12. CEFADROXIL (CEFADROXIL) [Concomitant]
  13. METRONIDAZOLE [Concomitant]
  14. POTASSIUM (POTASSIUM) [Concomitant]

REACTIONS (3)
  - CARDIAC FAILURE CONGESTIVE [None]
  - HIP FRACTURE [None]
  - SPINAL FRACTURE [None]
